FAERS Safety Report 10523547 (Version 2)
Quarter: 2014Q4

REPORT INFORMATION
  Report Type: Spontaneous
  Country: PL (occurrence: PL)
  Receive Date: 20141017
  Receipt Date: 20141105
  Transmission Date: 20150528
  Serious: Yes (Other)
  Sender: FDA-Public Use
  Company Number: PL-ROCHE-1472019

PATIENT
  Age: 59 Year
  Sex: Male

DRUGS (5)
  1. GANCICLOVIR. [Suspect]
     Active Substance: GANCICLOVIR
     Indication: CYTOMEGALOVIRUS INFECTION
     Route: 065
  2. MABTHERA [Suspect]
     Active Substance: RITUXIMAB
     Indication: PRODUCT USED FOR UNKNOWN INDICATION
     Route: 065
  3. CYCLOPHOSPHAMIDE. [Concomitant]
     Active Substance: CYCLOPHOSPHAMIDE
  4. PREDNISONE. [Concomitant]
     Active Substance: PREDNISONE
  5. VINCRISTINE [Concomitant]
     Active Substance: VINCRISTINE

REACTIONS (14)
  - Monoparesis [Unknown]
  - Cachexia [Unknown]
  - Skin atrophy [Unknown]
  - Leukocytosis [Unknown]
  - Drug ineffective [Unknown]
  - Ischaemic stroke [Unknown]
  - Pneumonia [Unknown]
  - Glomerular filtration rate decreased [Unknown]
  - Lymphadenopathy [Unknown]
  - Chronic graft versus host disease [Unknown]
  - Nodule [Unknown]
  - Pseudomonas infection [Unknown]
  - Autoimmune haemolytic anaemia [Unknown]
  - Hepatosplenomegaly [Unknown]
